FAERS Safety Report 22167684 (Version 1)
Quarter: 2023Q2

REPORT INFORMATION
  Report Type: Spontaneous
  Country: US (occurrence: US)
  Receive Date: 20230403
  Receipt Date: 20230403
  Transmission Date: 20230722
  Serious: No
  Sender: FDA-Public Use
  Company Number: US-TAKEDA-2023TUS031670

PATIENT
  Sex: Female

DRUGS (1)
  1. GAMMAGARD LIQUID [Suspect]
     Active Substance: HUMAN IMMUNOGLOBULIN G
     Indication: Ill-defined disorder
     Dosage: 55 GRAM, MONTHLY
     Route: 042

REACTIONS (2)
  - Anti-thyroid antibody increased [Unknown]
  - Blood thyroid stimulating hormone abnormal [Unknown]
